FAERS Safety Report 7718894-0 (Version None)
Quarter: 2011Q3

REPORT INFORMATION
  Report Type: 
  Country: None (occurrence: None)
  Receive Date: 20110830
  Receipt Date: 20110823
  Transmission Date: 20111222
  Serious: Yes (Hospitalization, Other)
  Sender: FDA-Public Use
  Company Number: US-SANOFI-AVENTIS-2011SA054166

PATIENT
  Sex: Female

DRUGS (2)
  1. LANTUS [Suspect]
     Dosage: 10 UNITS IN THE MORNING AND 4 UNITS AT NIGHT
     Route: 058
  2. OPTICLICK [Suspect]

REACTIONS (2)
  - FOOT OPERATION [None]
  - ANKLE FRACTURE [None]
